FAERS Safety Report 5874043-5 (Version None)
Quarter: 2008Q3

REPORT INFORMATION
  Report Type: 
  Country: None (occurrence: None)
  Receive Date: 20080908
  Receipt Date: 20080903
  Transmission Date: 20090109
  Serious: Yes (Other)
  Sender: FDA-Public Use
  Company Number: FR-BRISTOL-MYERS SQUIBB COMPANY-14325310

PATIENT
  Age: 39 Year
  Sex: Female

DRUGS (3)
  1. TAXOL [Suspect]
     Indication: BREAST CANCER
     Dosage: INITIATED ON 20-OCT-2006
     Dates: start: 20071023, end: 20071023
  2. AVASTIN [Suspect]
     Indication: BREAST CANCER
     Dosage: 15MG/KG
     Dates: start: 20061020
  3. GEMZAR [Suspect]
     Indication: BREAST CANCER
     Dosage: INITIATED ON 20-OCT-2006, GIVEN ON DAY1 AND DAY8.
     Dates: start: 20071023, end: 20071023

REACTIONS (1)
  - NASAL SEPTUM PERFORATION [None]
